FAERS Safety Report 11391462 (Version 1)
Quarter: 2015Q3

REPORT INFORMATION
  Report Type: Report from Study
  Country: US (occurrence: US)
  Receive Date: 20150818
  Receipt Date: 20150818
  Transmission Date: 20151125
  Serious: No
  Sender: FDA-Public Use
  Company Number: PHHY2015US000528

PATIENT
  Age: 65 Year
  Sex: Male

DRUGS (19)
  1. OXALIPLATIN. [Suspect]
     Active Substance: OXALIPLATIN
     Dosage: 85 MG/M2, QD
     Route: 042
     Dates: start: 20130925
  2. LEVOLEUCOVORIN. [Suspect]
     Active Substance: LEVOLEUCOVORIN
     Indication: COLORECTAL CANCER METASTATIC
     Dosage: 100 MG/M2, QD
     Route: 042
     Dates: start: 20130724, end: 20130918
  3. OXALIPLATIN. [Suspect]
     Active Substance: OXALIPLATIN
     Indication: COLORECTAL CANCER METASTATIC
     Dosage: 85 MG/M2, QD
     Route: 042
     Dates: start: 20130612, end: 20130918
  4. 5-FLUOROURACIL [Suspect]
     Active Substance: FLUOROURACIL
     Dosage: UNK
     Route: 065
     Dates: start: 20130925
  5. CARVEDIOL [Concomitant]
     Active Substance: CARVEDILOL
     Indication: HYPERTENSION
     Dosage: 12.5 MG, UNK
     Route: 065
     Dates: start: 201105
  6. IRINOTECAN [Suspect]
     Active Substance: IRINOTECAN
     Dosage: UNK
     Route: 065
     Dates: start: 20130925
  7. IRINOTECAN [Suspect]
     Active Substance: IRINOTECAN
     Dosage: 165 MG/M2, QD
     Route: 042
     Dates: start: 20130904
  8. LEVOLEUCOVORIN. [Suspect]
     Active Substance: LEVOLEUCOVORIN
     Dosage: UNK
     Route: 065
     Dates: start: 20130925
  9. BEVACIZUMAB [Suspect]
     Active Substance: BEVACIZUMAB
     Indication: COLORECTAL CANCER METASTATIC
     Dosage: 5 MG/KG, QD
     Route: 042
     Dates: start: 20130612, end: 20130918
  10. LEUCOVORIN CALCIUM. [Suspect]
     Active Substance: LEUCOVORIN CALCIUM
     Indication: COLORECTAL CANCER METASTATIC
     Dosage: 404 MG (1 IN 2 WEEK)
     Route: 065
     Dates: start: 20130612, end: 20130918
  11. 5-FLUOROURACIL [Suspect]
     Active Substance: FLUOROURACIL
     Dosage: 3200 MG/M2, QD
     Route: 017
     Dates: start: 20130904
  12. LEVOLEUCOVORIN. [Suspect]
     Active Substance: LEVOLEUCOVORIN
     Dosage: 100 MG/M2, QD
     Route: 042
     Dates: start: 20130904
  13. LEUCOVORIN CALCIUM. [Suspect]
     Active Substance: LEUCOVORIN CALCIUM
     Dosage: 404 MG (1 IN 2 WK)
     Route: 042
     Dates: start: 20130925
  14. LISINOPRIL. [Concomitant]
     Active Substance: LISINOPRIL
     Indication: HYPERTENSION
     Dosage: 20 MG, UNK
     Route: 065
     Dates: start: 201105
  15. 5-FLUOROURACIL [Suspect]
     Active Substance: FLUOROURACIL
     Indication: COLORECTAL CANCER METASTATIC
     Dosage: 3200 MG/M2, QD
     Route: 065
     Dates: start: 20130612, end: 20130918
  16. BEVACIZUMAB [Suspect]
     Active Substance: BEVACIZUMAB
     Dosage: 5 MG/KG, QD
     Route: 042
     Dates: start: 20130904
  17. OXALIPLATIN. [Suspect]
     Active Substance: OXALIPLATIN
     Dosage: UNK
     Route: 065
     Dates: start: 20130925
  18. IRINOTECAN [Suspect]
     Active Substance: IRINOTECAN
     Indication: COLORECTAL CANCER METASTATIC
     Dosage: 165 MG/M2, QD
     Route: 042
     Dates: start: 20130612, end: 20130918
  19. BEVACIZUMAB [Suspect]
     Active Substance: BEVACIZUMAB
     Dosage: UNK
     Route: 065
     Dates: start: 20130925

REACTIONS (1)
  - Hypertension [Recovered/Resolved]

NARRATIVE: CASE EVENT DATE: 20130918
